FAERS Safety Report 6259929-4 (Version None)
Quarter: 2009Q3

REPORT INFORMATION
  Report Type: 
  Country: None (occurrence: None)
  Receive Date: 20090708
  Receipt Date: 20090703
  Transmission Date: 20100115
  Serious: Yes (Life-Threatening)
  Sender: FDA-Public Use
  Company Number: PHHY2009GB27221

PATIENT
  Age: 44 Year
  Sex: Female
  Weight: 50 kg

DRUGS (2)
  1. SINTHROME [Interacting]
     Indication: ANTICOAGULANT THERAPY
     Dosage: 5 MG, QD
     Route: 048
  2. LAMISIL [Suspect]
     Indication: FUNGAL INFECTION
     Dosage: 2 DF/DAY
     Route: 061
     Dates: start: 20090605, end: 20090610

REACTIONS (3)
  - DRUG INTERACTION [None]
  - GINGIVAL BLEEDING [None]
  - INTERNATIONAL NORMALISED RATIO INCREASED [None]
